FAERS Safety Report 19367147 (Version 1)
Quarter: 2021Q2

REPORT INFORMATION
  Report Type: Report from Study
  Country: IN (occurrence: IN)
  Receive Date: 20210602
  Receipt Date: 20210602
  Transmission Date: 20210717
  Serious: Yes (Death)
  Sender: FDA-Public Use
  Company Number: NVSC2020IN350020

PATIENT
  Sex: Male

DRUGS (1)
  1. VYMADA [Suspect]
     Active Substance: SACUBITRIL\VALSARTAN
     Indication: CARDIAC FAILURE CONGESTIVE
     Dosage: 50 MG (HALF BD)
     Route: 048
     Dates: start: 20190329

REACTIONS (3)
  - Cardiopulmonary failure [Fatal]
  - Wrong technique in product usage process [Unknown]
  - Underdose [Unknown]
